FAERS Safety Report 25039547 (Version 1)
Quarter: 2025Q1

REPORT INFORMATION
  Report Type: Spontaneous
  Country: US (occurrence: US)
  Receive Date: 20250305
  Receipt Date: 20250305
  Transmission Date: 20250408
  Serious: Yes (Other)
  Sender: SANOFI AVENTIS
  Company Number: US-DialogSolutions-SAAVPROD-PI703060-C1

PATIENT
  Age: 76 Year
  Sex: Male

DRUGS (3)
  1. CLOPIDOGREL BISULFATE [Suspect]
     Active Substance: CLOPIDOGREL BISULFATE
     Indication: Peripheral arterial occlusive disease
  2. SIMVASTATIN [Concomitant]
     Active Substance: SIMVASTATIN
     Indication: Peripheral arterial occlusive disease
  3. TAMSULOSIN [Concomitant]
     Active Substance: TAMSULOSIN
     Indication: Peripheral arterial occlusive disease

REACTIONS (4)
  - Thrombosis [Recovered/Resolved]
  - Lymphocytic infiltration [Recovered/Resolved]
  - Epidermal necrosis [Recovered/Resolved]
  - Gangrene [Recovered/Resolved]
